FAERS Safety Report 6285436-9 (Version None)
Quarter: 2009Q3

REPORT INFORMATION
  Report Type: 
  Country: None (occurrence: None)
  Receive Date: 20090727
  Receipt Date: 20090722
  Transmission Date: 20100115
  Serious: Yes (Death)
  Sender: FDA-Public Use
  Company Number: US-CELGENEUS-163-21880-09071591

PATIENT
  Sex: Male

DRUGS (6)
  1. REVLIMID [Suspect]
     Route: 048
     Dates: start: 20090401, end: 20090101
  2. REVLIMID [Suspect]
     Route: 048
     Dates: start: 20080801
  3. THALOMID [Suspect]
     Route: 048
     Dates: start: 20090501, end: 20090101
  4. THALOMID [Suspect]
     Route: 048
     Dates: start: 20090201
  5. THALOMID [Suspect]
     Route: 048
     Dates: start: 20081001
  6. THALOMID [Suspect]
     Route: 048
     Dates: start: 20080801

REACTIONS (1)
  - DEATH [None]
